FAERS Safety Report 16180470 (Version 1)
Quarter: 2019Q2

REPORT INFORMATION
  Report Type: Spontaneous
  Country: US (occurrence: US)
  Receive Date: 20190410
  Receipt Date: 20190410
  Transmission Date: 20190711
  Serious: No
  Sender: FDA-Public Use
  Company Number: US-SA-2019SA100111

PATIENT
  Sex: Male

DRUGS (8)
  1. DOXEPIN [Concomitant]
     Active Substance: DOXEPIN
  2. DUPIXENT [Suspect]
     Active Substance: DUPILUMAB
     Indication: DERMATITIS ATOPIC
     Dosage: 300 MG, QOW
     Route: 058
     Dates: start: 20180502
  3. SOTALOL. [Concomitant]
     Active Substance: SOTALOL
  4. MONTELUKAST [Concomitant]
     Active Substance: MONTELUKAST SODIUM
  5. DEPLIN [Concomitant]
     Active Substance: LEVOMEFOLATE CALCIUM
  6. SERTRALINE [Concomitant]
     Active Substance: SERTRALINE HYDROCHLORIDE
  7. ASPIRIN [ACETYLSALICYLIC ACID] [Concomitant]
     Active Substance: ASPIRIN
  8. ELIQUIS [Concomitant]
     Active Substance: APIXABAN

REACTIONS (1)
  - Dermatitis atopic [Unknown]
